FAERS Safety Report 6228268-X (Version None)
Quarter: 2009Q2

REPORT INFORMATION
  Report Type: 
  Country: None (occurrence: None)
  Receive Date: 20090612
  Receipt Date: 20090604
  Transmission Date: 20091009
  Serious: Yes (Other)
  Sender: FDA-Public Use
  Company Number: PHHY2009US21974

PATIENT

DRUGS (1)
  1. PAMIDRONATE DISODIUM [Suspect]
     Dosage: UNK

REACTIONS (3)
  - BONE LESION [None]
  - OSTEONECROSIS [None]
  - PAIN IN JAW [None]
